FAERS Safety Report 19984031 (Version 1)
Quarter: 2021Q4

REPORT INFORMATION
  Report Type: Spontaneous
  Country: GB (occurrence: GB)
  Receive Date: 20211021
  Receipt Date: 20211021
  Transmission Date: 20220303
  Serious: Yes (Hospitalization)
  Sender: FDA-Public Use
  Company Number: None

PATIENT

DRUGS (3)
  1. PREDNISOLONE [Suspect]
     Active Substance: PREDNISOLONE
     Indication: Ill-defined disorder
     Route: 048
     Dates: start: 20210630, end: 20210922
  2. DOXORUBICIN [Suspect]
     Active Substance: DOXORUBICIN
     Indication: Ill-defined disorder
     Route: 051
     Dates: start: 20210630, end: 20210922
  3. VINCRISTINE SULFATE [Suspect]
     Active Substance: VINCRISTINE SULFATE
     Indication: Ill-defined disorder
     Route: 051
     Dates: start: 20210630, end: 20210922

REACTIONS (1)
  - Herpes zoster [Not Recovered/Not Resolved]
